FAERS Safety Report 23116725 (Version 1)
Quarter: 2023Q4

REPORT INFORMATION
  Report Type: Spontaneous
  Country: US (occurrence: None)
  Receive Date: 20231026
  Receipt Date: 20231026
  Transmission Date: 20240109
  Serious: No
  Sender: FDA-Public Use
  Company Number: None

PATIENT
  Sex: Female

DRUGS (2)
  1. OTEZLA [Suspect]
     Active Substance: APREMILAST
     Dosage: FREQUENCY : TWICE A DAY;?
     Route: 048
     Dates: start: 201610
  2. RASUVO AUTO INJ [Concomitant]

REACTIONS (4)
  - Joint swelling [None]
  - Arthralgia [None]
  - Drug ineffective [None]
  - Condition aggravated [None]
